FAERS Safety Report 9857593 (Version 2)
Quarter: 2014Q1

REPORT INFORMATION
  Report Type: Report from Study
  Country: CO (occurrence: CO)
  Receive Date: 20140131
  Receipt Date: 20140213
  Transmission Date: 20141002
  Serious: Yes (Death)
  Sender: FDA-Public Use
  Company Number: CO-ASTRAZENECA-2014SE06133

PATIENT
  Age: 22510 Day
  Sex: Male

DRUGS (5)
  1. BRILINTA [Suspect]
     Route: 048
     Dates: start: 20131015, end: 20131117
  2. ATORVASTATIN [Concomitant]
  3. AMLODIPINE [Concomitant]
  4. ENALAPRIL [Concomitant]
  5. CLONIDINE [Concomitant]

REACTIONS (1)
  - Acute myocardial infarction [Fatal]
